FAERS Safety Report 11451218 (Version 1)
Quarter: 2015Q3

REPORT INFORMATION
  Report Type: Spontaneous
  Country: CA (occurrence: CA)
  Receive Date: 20150903
  Receipt Date: 20150903
  Transmission Date: 20151125
  Serious: Yes (Hospitalization, Disabling)
  Sender: FDA-Public Use
  Company Number: CA-TEVA-591150ACC

PATIENT
  Sex: Female

DRUGS (1)
  1. VENLAFAXINE XR [Suspect]
     Active Substance: VENLAFAXINE HYDROCHLORIDE
     Indication: PRODUCT USED FOR UNKNOWN INDICATION
     Dosage: 300 MILLIGRAM DAILY;
     Route: 065

REACTIONS (5)
  - Hypotonia neonatal [Unknown]
  - Somnolence [Unknown]
  - General physical health deterioration [Unknown]
  - Feeding disorder of infancy or early childhood [Unknown]
  - Grunting [Unknown]
